FAERS Safety Report 5361652-5 (Version None)
Quarter: 2007Q2

REPORT INFORMATION
  Report Type: 
  Country: None (occurrence: None)
  Receive Date: 20070615
  Receipt Date: 20070615
  Transmission Date: 20071010
  Serious: Yes (Life-Threatening, Hospitalization, Disabling)
  Sender: FDA-Public Use
  Company Number: None

PATIENT
  Age: 43 Year
  Sex: Male
  Weight: 108.8633 kg

DRUGS (2)
  1. CORDIS CYPHER JOHNSON + JOHNSON [Suspect]
     Indication: ARTERIAL OCCLUSIVE DISEASE
     Dosage: PERMANENT
     Dates: start: 20060528, end: 20070614
  2. CORDIS CYPHER JOHNSON + JOHNSON [Suspect]
     Indication: MYOCARDIAL INFARCTION
     Dosage: PERMANENT
     Dates: start: 20060528, end: 20070614

REACTIONS (2)
  - CORONARY ARTERY OCCLUSION [None]
  - STENT OCCLUSION [None]
